FAERS Safety Report 8440729-1 (Version None)
Quarter: 2012Q2

REPORT INFORMATION
  Report Type: 
  Country: None (occurrence: None)
  Receive Date: 20120615
  Receipt Date: 20120613
  Transmission Date: 20120825
  Serious: No
  Sender: FDA-Public Use
  Company Number: US-PFIZER INC-2012143557

PATIENT
  Sex: Male
  Weight: 74.83 kg

DRUGS (4)
  1. KEPPRA [Concomitant]
     Indication: CONVULSION
     Dosage: 1000 MG, 2X/DAY
  2. CHANTIX [Suspect]
     Dosage: 1 MG, 2X/DAY
     Dates: start: 20120101, end: 20120501
  3. CHANTIX [Suspect]
     Indication: SMOKING CESSATION THERAPY
     Dosage: 0.5 MG, DAILY
     Dates: start: 20120101, end: 20120101
  4. ADVAIR DISKUS 100/50 [Concomitant]
     Indication: CONVULSION
     Dosage: 250/50 MG, 2X/DAY

REACTIONS (1)
  - URINARY HESITATION [None]
